FAERS Safety Report 16939482 (Version 1)
Quarter: 2019Q4

REPORT INFORMATION
  Report Type: Spontaneous
  Country: US (occurrence: US)
  Receive Date: 20191021
  Receipt Date: 20191021
  Transmission Date: 20200122
  Serious: No
  Sender: FDA-Public Use
  Company Number: US-AUROBINDO-AUR-APL-2019-059705

PATIENT
  Age: 25 Year
  Sex: Male
  Weight: 101 kg

DRUGS (2)
  1. PROZAC [Concomitant]
     Active Substance: FLUOXETINE HYDROCHLORIDE
     Indication: PRODUCT USED FOR UNKNOWN INDICATION
     Dosage: UNK
     Route: 065
  2. ZIPRASIDONE HYDROCHLORIDE CAPSULES 80 MG [Suspect]
     Active Substance: ZIPRASIDONE HYDROCHLORIDE
     Indication: HALLUCINATION, AUDITORY
     Dosage: 1 DOSAGE FORM, DAILY
     Route: 065
     Dates: start: 20190810

REACTIONS (1)
  - Tremor [Not Recovered/Not Resolved]
